FAERS Safety Report 10699688 (Version 1)
Quarter: 2015Q1

REPORT INFORMATION
  Report Type: Spontaneous
  Country: US (occurrence: US)
  Receive Date: 20150109
  Receipt Date: 20150109
  Transmission Date: 20150721
  Serious: No
  Sender: FDA-Public Use
  Company Number: US-BIOGENIDEC-2015BI001953

PATIENT
  Sex: Male

DRUGS (11)
  1. GABAPENTIN. [Concomitant]
     Active Substance: GABAPENTIN
  2. TECFIDERA [Suspect]
     Active Substance: DIMETHYL FUMARATE
     Indication: MULTIPLE SCLEROSIS
     Route: 048
     Dates: start: 20141203
  3. TECFIDERA [Suspect]
     Active Substance: DIMETHYL FUMARATE
     Indication: MULTIPLE SCLEROSIS
     Route: 048
     Dates: start: 20141203
  4. AMANTADINE [Concomitant]
     Active Substance: AMANTADINE
  5. BACLOFEN. [Concomitant]
     Active Substance: BACLOFEN
  6. TOLTERODINE [Concomitant]
     Active Substance: TOLTERODINE
  7. MULTIVITAMIN [Concomitant]
     Active Substance: VITAMINS
  8. PREDNISONE OPTH SOLN [Concomitant]
  9. OMEPRAZOLE. [Concomitant]
     Active Substance: OMEPRAZOLE
  10. AZITHROMYEIN [Concomitant]
  11. VITAMIN D [Concomitant]
     Active Substance: CHOLECALCIFEROL

REACTIONS (1)
  - Headache [Unknown]

NARRATIVE: CASE EVENT DATE: 20141203
